FAERS Safety Report 8901018 (Version 1)
Quarter: 2012Q4

REPORT INFORMATION
  Report Type: 
  Country: JP (occurrence: JP)
  Receive Date: 20121109
  Receipt Date: 20121109
  Transmission Date: 20130627
  Serious: Yes (Hospitalization)
  Sender: FDA-Public Use
  Company Number: JP-PFIZER INC-2012278624

PATIENT
  Age: 66 Year
  Sex: Male
  Weight: 60 kg

DRUGS (9)
  1. ZOSYN [Suspect]
     Indication: PNEUMONIA
     Dosage: 3 V (1 vial x3/day)
     Route: 041
     Dates: start: 20120924, end: 20121009
  2. CONIEL [Concomitant]
     Dosage: 8 mg/day
     Route: 048
  3. EPADEL [Concomitant]
     Dosage: UNK
     Route: 048
  4. MICARDIS [Concomitant]
     Dosage: UNK
     Route: 048
  5. MEVALOTIN [Concomitant]
     Dosage: UNK
     Route: 048
  6. PARIET [Concomitant]
     Dosage: UNK
     Route: 048
  7. MIYA-BM [Concomitant]
     Dosage: UNK
     Route: 048
  8. JANUVIA [Concomitant]
     Dosage: UNK
     Route: 048
  9. CALONAL [Concomitant]
     Dosage: UNK

REACTIONS (1)
  - Interstitial lung disease [Recovered/Resolved]
